FAERS Safety Report 6793824-7 (Version None)
Quarter: 2010Q2

REPORT INFORMATION
  Report Type: 
  Country: None (occurrence: None)
  Receive Date: 20100624
  Receipt Date: 20090630
  Transmission Date: 20101027
  Serious: No
  Sender: FDA-Public Use
  Company Number: US-PFIZER INC-2008156810

PATIENT

DRUGS (2)
  1. GEODON [Suspect]
     Indication: AGITATION
     Dosage: 20 MG, UNK
     Route: 030
  2. GEODON [Suspect]
     Indication: AGGRESSION

REACTIONS (2)
  - AGGRESSION [None]
  - AGITATION [None]
